FAERS Safety Report 15326489 (Version 2)
Quarter: 2018Q3

REPORT INFORMATION
  Report Type: Report from Study
  Country: BR (occurrence: BR)
  Receive Date: 20180828
  Receipt Date: 20180829
  Transmission Date: 20181010
  Serious: Yes (Death, Hospitalization, Other)
  Sender: FDA-Public Use
  Company Number: BR-SA-2018SA191665

PATIENT
  Age: 57 Year
  Sex: Female

DRUGS (10)
  1. ANTI?THYMOCYTE GLOBULIN (RABBIT) NOS [Suspect]
     Active Substance: LAPINE T-LYMPHOCYTE IMMUNE GLOBULIN
     Indication: BONE MARROW CONDITIONING REGIMEN
     Dosage: 1 MG/KG
     Route: 042
     Dates: start: 2013
  2. MYCOPHENOLATE MOFETIL. [Concomitant]
     Active Substance: MYCOPHENOLATE MOFETIL
     Indication: PROPHYLAXIS
     Dosage: 500 MG, Q8H
     Route: 048
     Dates: start: 2013
  3. PREDNISONE. [Concomitant]
     Active Substance: PREDNISONE
     Dosage: 20 MG, QD
     Route: 048
  4. TACROLIMUS. [Concomitant]
     Active Substance: TACROLIMUS
     Indication: PROPHYLAXIS
     Dosage: 1.0 MG, Q12H
     Route: 048
     Dates: start: 2013
  5. PREDNISONE. [Concomitant]
     Active Substance: PREDNISONE
     Dosage: 5 UNK
     Route: 042
  6. SULFAMETHOXAZOLE AND TRIMETHOPRIM [Concomitant]
     Active Substance: SULFAMETHOXAZOLE\TRIMETHOPRIM
     Indication: PROPHYLAXIS
     Dosage: 400 MG/80 MG, QD
     Route: 048
     Dates: start: 2013
  7. MEROPENEM. [Concomitant]
     Active Substance: MEROPENEM
     Indication: PROPHYLAXIS
     Dosage: 1000 MG, QD
     Route: 042
     Dates: start: 2013
  8. PREDNISONE. [Concomitant]
     Active Substance: PREDNISONE
     Indication: PROPHYLAXIS
     Dosage: 30 MG, QD
     Route: 048
     Dates: start: 2013
  9. PREDNISONE. [Concomitant]
     Active Substance: PREDNISONE
     Dosage: 10 MG, QD
     Route: 048
  10. POLYMYXIN [Concomitant]
     Active Substance: POLYMYXIN
     Indication: PROPHYLAXIS
     Dosage: 15.000 U/KG, Q12H
     Route: 042
     Dates: start: 2013

REACTIONS (16)
  - Productive cough [Fatal]
  - Cytomegalovirus oesophagitis [Recovered/Resolved]
  - Pyelonephritis [Fatal]
  - Pleural effusion [Fatal]
  - Pulmonary mass [Fatal]
  - Transplant dysfunction [Fatal]
  - Urinary tract infection bacterial [Fatal]
  - Pleuritic pain [Fatal]
  - Pyrexia [Fatal]
  - Pleural fibrosis [Fatal]
  - Seizure [Fatal]
  - Respiratory tract infection fungal [Fatal]
  - Toxoplasmosis [Fatal]
  - Klebsiella sepsis [Fatal]
  - Gastrointestinal haemorrhage [Recovered/Resolved]
  - Candida sepsis [Recovered/Resolved]

NARRATIVE: CASE EVENT DATE: 2013
